FAERS Safety Report 8053699-5 (Version None)
Quarter: 2011Q4

REPORT INFORMATION
  Report Type: 
  Country: None (occurrence: None)
  Receive Date: 20111213
  Receipt Date: 20111018
  Transmission Date: 20120403
  Serious: No
  Sender: FDA-Public Use
  Company Number: 2011SP046360

PATIENT
  Age: 51 Year
  Sex: Male

DRUGS (1)
  1. SAPHRIS [Suspect]
     Indication: PRODUCT USED FOR UNKNOWN INDICATION
     Dosage: 5 MG; HS; SL
     Route: 060
     Dates: start: 20100927

REACTIONS (2)
  - UNDERDOSE [None]
  - PARAESTHESIA [None]
